FAERS Safety Report 5888838-5 (Version None)
Quarter: 2008Q3

REPORT INFORMATION
  Report Type: 
  Country: None (occurrence: None)
  Receive Date: 20080919
  Receipt Date: 20080804
  Transmission Date: 20090109
  Serious: No
  Sender: FDA-Public Use
  Company Number: A0740916A

PATIENT
  Age: 66 Year
  Sex: Female

DRUGS (2)
  1. AVANDARYL [Suspect]
     Dosage: 1TAB PER DAY
     Route: 048
     Dates: start: 20080101
  2. OTHER MEDICATIONS [Concomitant]

REACTIONS (6)
  - ANOREXIA [None]
  - BACK PAIN [None]
  - COUGH [None]
  - HEADACHE [None]
  - PALPITATIONS [None]
  - RETCHING [None]
